FAERS Safety Report 24383156 (Version 1)
Quarter: 2024Q4

REPORT INFORMATION
  Report Type: Spontaneous
  Country: US (occurrence: US)
  Receive Date: 20241001
  Receipt Date: 20241001
  Transmission Date: 20250114
  Serious: No
  Sender: CATALYST PHARMA
  Company Number: US-CATALYST PHARMACEUTICALS-US-CATA-24-00480

PATIENT
  Age: 12 Year
  Sex: Male
  Weight: 54.2 kg

DRUGS (11)
  1. AGAMREE [Suspect]
     Active Substance: VAMOROLONE
     Indication: Duchenne muscular dystrophy
     Dosage: 7.5 ML 1X A DAY
     Route: 048
     Dates: start: 20240525
  2. VITAMINS [Concomitant]
     Active Substance: VITAMINS
     Indication: Product used for unknown indication
     Dosage: 1X A DAY
     Route: 065
  3. LISINOPRIL [Concomitant]
     Active Substance: LISINOPRIL
     Indication: Product used for unknown indication
     Dosage: 10 MG DAILY
     Route: 048
     Dates: start: 20240412
  4. CHOLECALCIFEROL [Concomitant]
     Active Substance: CHOLECALCIFEROL
     Indication: Product used for unknown indication
     Dosage: 1 ML DAILY
     Route: 048
     Dates: start: 20240412
  5. CALCIUM CARBONATE [Concomitant]
     Active Substance: CALCIUM CARBONATE
     Indication: Product used for unknown indication
     Dosage: 500 MILLIGRAM (1 TABLET), BID
     Route: 048
     Dates: start: 20240412
  6. FAMOTIDINE [Concomitant]
     Active Substance: FAMOTIDINE
     Indication: Product used for unknown indication
     Dosage: 2,5 ML EVERY NIGHT AT BEDTIME
     Route: 048
     Dates: start: 20240412
  7. ALBUTEROL [Concomitant]
     Active Substance: ALBUTEROL
     Indication: Lung disorder
     Dosage: 3 ML TWO TIMES DAILY AS NEEDED
     Route: 055
     Dates: start: 20240412
  8. ALBUTEROL [Concomitant]
     Active Substance: ALBUTEROL
     Indication: Cough
     Dosage: 90 MCG/ INH AT TWO PUFF  TWO TIMES DAILY AS NEEDED
     Route: 055
     Dates: start: 20240412
  9. MIRALAX [Concomitant]
     Active Substance: POLYETHYLENE GLYCOL 3350
     Indication: Product used for unknown indication
     Dosage: 8.5 GRAM, QD
     Route: 048
     Dates: start: 20230731
  10. EMFLAZA [Concomitant]
     Active Substance: DEFLAZACORT
     Indication: Product used for unknown indication
     Dosage: 30 MILLIGRAM (1 TABLET), QD
     Route: 048
     Dates: start: 20220908
  11. VILTOLARSEN [Concomitant]
     Active Substance: VILTOLARSEN
     Indication: Product used for unknown indication
     Dosage: 80 MG/ KG
     Route: 042
     Dates: start: 20220107

REACTIONS (2)
  - Thirst [Not Recovered/Not Resolved]
  - Therapeutic response unexpected [Unknown]

NARRATIVE: CASE EVENT DATE: 20240504
